FAERS Safety Report 5978683-4 (Version None)
Quarter: 2008Q4

REPORT INFORMATION
  Report Type: 
  Country: None (occurrence: None)
  Receive Date: 20081126
  Receipt Date: 20081117
  Transmission Date: 20090506
  Serious: Yes (Life-Threatening, Other)
  Sender: FDA-Public Use
  Company Number: 2007US002374

PATIENT
  Age: 32 Year
  Sex: Male

DRUGS (10)
  1. PROGRAF [Suspect]
     Indication: RENAL TRANSPLANT
     Dosage: 5 MG, BID, ORAL; 1M MG, UID/QD, ORAL; 11 MG, UID/QD
     Route: 048
     Dates: start: 20030101
  2. PROGRAF [Suspect]
     Indication: RENAL TRANSPLANT
     Dosage: 5 MG, BID, ORAL; 1M MG, UID/QD, ORAL; 11 MG, UID/QD
     Route: 048
     Dates: start: 20030101
  3. PROGRAF [Suspect]
     Indication: RENAL TRANSPLANT
     Dosage: 5 MG, BID, ORAL; 1M MG, UID/QD, ORAL; 11 MG, UID/QD
     Route: 048
     Dates: start: 20070820
  4. NORVASC [Concomitant]
  5. PREDNISOLONE ACETATE [Concomitant]
  6. NOVOLOG [Concomitant]
  7. SYNTHROID [Concomitant]
  8. ENALAPRIL (ENALAPRIL MALEATE0 [Concomitant]
  9. CELLCEPT [Concomitant]
  10. LANTUS [Concomitant]

REACTIONS (7)
  - BLOOD CREATININE INCREASED [None]
  - DIALYSIS [None]
  - HAEMODIALYSIS [None]
  - KIDNEY TRANSPLANT REJECTION [None]
  - PANCREAS TRANSPLANT REJECTION [None]
  - RENAL FAILURE [None]
  - RENAL FAILURE CHRONIC [None]
